FAERS Safety Report 5495657-0 (Version None)
Quarter: 2007Q4

REPORT INFORMATION
  Report Type: 
  Country: None (occurrence: None)
  Receive Date: 20071015
  Receipt Date: 20060913
  Transmission Date: 20080405
  Serious: Yes (Other)
  Sender: FDA-Public Use
  Company Number: S06-USA-03685-01

PATIENT
  Age: 31 Year
  Sex: Female
  Weight: 112.0385 kg

DRUGS (2)
  1. LEXAPRO [Suspect]
     Indication: ANXIETY
     Dosage: 30 MG QD PO
     Route: 048
     Dates: start: 20040101
  2. ATIVAN [Concomitant]

REACTIONS (2)
  - WEIGHT INCREASED [None]
  - WEIGHT LOSS POOR [None]
